FAERS Safety Report 11864311 (Version 1)
Quarter: 2015Q4

REPORT INFORMATION
  Report Type: Report from Study
  Country: US (occurrence: US)
  Receive Date: 20151223
  Receipt Date: 20151223
  Transmission Date: 20160305
  Serious: No
  Sender: FDA-Public Use
  Company Number: US-ABBVIE-15P-163-1388117-00

PATIENT
  Sex: Male

DRUGS (2)
  1. LUPRON DEPOT [Suspect]
     Active Substance: LEUPROLIDE ACETATE
     Indication: LIBIDO DECREASED
     Route: 030
     Dates: start: 200602, end: 2009
  2. LUPRON DEPOT [Suspect]
     Active Substance: LEUPROLIDE ACETATE
     Route: 050
     Dates: start: 200912

REACTIONS (5)
  - Paraphilia [Recovered/Resolved]
  - Libido increased [Recovered/Resolved]
  - Sexual dysfunction [Not Recovered/Not Resolved]
  - Disturbance in sexual arousal [Not Recovered/Not Resolved]
  - Off label use [Not Recovered/Not Resolved]

NARRATIVE: CASE EVENT DATE: 2009
